FAERS Safety Report 21787644 (Version 1)
Quarter: 2022Q4

REPORT INFORMATION
  Report Type: Report from Study
  Country: US (occurrence: US)
  Receive Date: 20221228
  Receipt Date: 20221228
  Transmission Date: 20230113
  Serious: Yes (Other)
  Sender: FDA-Public Use
  Company Number: US-TAIHO-2022-003425

PATIENT
  Age: 56 Year
  Sex: Female
  Weight: 52.71 kg

DRUGS (1)
  1. LONSURF [Suspect]
     Active Substance: TIPIRACIL HYDROCHLORIDE\TRIFLURIDINE
     Indication: Colon cancer
     Dosage: CYCLE 1
     Route: 048
     Dates: start: 20221115

REACTIONS (2)
  - Intra-abdominal fluid collection [Unknown]
  - Cytopenia [Unknown]
